FAERS Safety Report 9089444 (Version 2)
Quarter: 2014Q1

REPORT INFORMATION
  Report Type: Spontaneous
  Country: CA (occurrence: CA)
  Receive Date: 20130201
  Receipt Date: 20140121
  Transmission Date: 20141002
  Serious: Yes (Other)
  Sender: FDA-Public Use
  Company Number: PHHY2013CA008953

PATIENT
  Age: 68 Year
  Sex: Female
  Weight: 86 kg

DRUGS (2)
  1. FEMARA [Suspect]
     Indication: BREAST CANCER METASTATIC
     Dosage: 25 UG, QD
     Route: 048
     Dates: start: 2011
  2. XGEVA [Suspect]
     Indication: BREAST CANCER METASTATIC
     Dosage: 120 UKN, EVERY 28 DAYS
     Route: 058
     Dates: start: 20120207

REACTIONS (6)
  - Fall [Recovered/Resolved]
  - Laceration [Recovered/Resolved]
  - Clavicle fracture [Recovered/Resolved]
  - Radius fracture [Recovered/Resolved]
  - Ankle fracture [Recovered/Resolved]
  - Anxiety [Recovered/Resolved]
